FAERS Safety Report 18647977 (Version 2)
Quarter: 2020Q4

REPORT INFORMATION
  Report Type: Spontaneous
  Country: IE (occurrence: IE)
  Receive Date: 20201222
  Receipt Date: 20201222
  Transmission Date: 20210114
  Serious: Yes (Hospitalization, Other)
  Sender: FDA-Public Use
  Company Number: IE-B.BRAUN MEDICAL INC.-2103299

PATIENT
  Age: 37 Year
  Sex: Female

DRUGS (7)
  1. ONDANSETRON [Concomitant]
     Active Substance: ONDANSETRON
  2. SODIUM CHLORIDE INJECTION USP 0264-7800-09 [Suspect]
     Active Substance: SODIUM CHLORIDE
  3. GONAL-F [Concomitant]
     Active Substance: FOLLITROPIN
  4. LUVERIS [Concomitant]
     Active Substance: LUTROPIN ALFA
  5. DIAZEPAM. [Concomitant]
     Active Substance: DIAZEPAM
  6. PETHIDINE HYDROCHLORIDE [Concomitant]
     Active Substance: MEPERIDINE HYDROCHLORIDE
  7. OVITRELLE [Concomitant]
     Active Substance: CHORIOGONADOTROPIN ALFA

REACTIONS (16)
  - Unresponsive to stimuli [None]
  - Respiratory arrest [None]
  - Somnolence [None]
  - Coma scale abnormal [None]
  - Lip dry [None]
  - Cardiac arrest [None]
  - Fatigue [None]
  - Loss of consciousness [None]
  - Pulse absent [None]
  - Extremity contracture [None]
  - Moaning [None]
  - Pulse abnormal [None]
  - Snoring [None]
  - Breath sounds absent [None]
  - Presyncope [None]
  - Pallor [None]
